FAERS Safety Report 26028738 (Version 3)
Quarter: 2025Q4

REPORT INFORMATION
  Report Type: Report from Study
  Country: CN (occurrence: CN)
  Receive Date: 20251111
  Receipt Date: 20251224
  Transmission Date: 20260118
  Serious: Yes (Hospitalization)
  Sender: JOHNSON AND JOHNSON
  Company Number: CN-JNJFOC-20251012188

PATIENT
  Age: 53 Year
  Sex: Male
  Weight: 66.5 kg

DRUGS (29)
  1. DARATUMUMAB [Suspect]
     Active Substance: DARATUMUMAB
     Indication: Plasma cell myeloma refractory
     Route: 041
     Dates: start: 20250909, end: 20250909
  2. DARATUMUMAB [Suspect]
     Active Substance: DARATUMUMAB
     Route: 041
     Dates: start: 20250910, end: 20250910
  3. DARATUMUMAB [Suspect]
     Active Substance: DARATUMUMAB
     Dosage: LOT/BATCH NO: DLTY4-01958
     Route: 041
     Dates: start: 20250918, end: 20250918
  4. DARATUMUMAB [Suspect]
     Active Substance: DARATUMUMAB
     Dosage: LOT/BATCH: DLTY4-03064
     Route: 041
     Dates: start: 20251007, end: 20251007
  5. DARATUMUMAB [Suspect]
     Active Substance: DARATUMUMAB
     Dosage: LOT/BATCH NO: DLTY4-03405
     Route: 041
     Dates: start: 20251014, end: 20251014
  6. DARATUMUMAB [Suspect]
     Active Substance: DARATUMUMAB
     Dosage: LOT/BATCH NO: DLTY4-03411
     Route: 041
     Dates: start: 20251022, end: 20251022
  7. DARATUMUMAB [Suspect]
     Active Substance: DARATUMUMAB
     Dosage: LOT/BATCH NO: DLTY4-03414
     Route: 041
     Dates: start: 20251027, end: 20251027
  8. POMALIDOMIDE [Suspect]
     Active Substance: POMALIDOMIDE
     Indication: Plasma cell myeloma refractory
     Route: 048
     Dates: start: 20250909, end: 20250915
  9. POMALIDOMIDE [Suspect]
     Active Substance: POMALIDOMIDE
     Route: 048
     Dates: start: 20250917, end: 20250921
  10. POMALIDOMIDE [Suspect]
     Active Substance: POMALIDOMIDE
     Dosage: LOT/BATCH NO: BMDA1-01977
     Route: 048
  11. DEXAMETHASONE [Suspect]
     Active Substance: DEXAMETHASONE
     Indication: Plasma cell myeloma refractory
     Route: 048
     Dates: start: 20250919, end: 20250919
  12. DEXAMETHASONE [Suspect]
     Active Substance: DEXAMETHASONE
     Route: 048
     Dates: start: 20251008, end: 20251008
  13. DEXAMETHASONE [Suspect]
     Active Substance: DEXAMETHASONE
     Route: 048
     Dates: start: 20251015, end: 20251015
  14. DEXAMETHASONE SODIUM PHOSPHATE [Suspect]
     Active Substance: DEXAMETHASONE SODIUM PHOSPHATE
     Indication: Plasma cell myeloma refractory
     Dosage: LOT/BATCH NO: DSMSZ-14903
     Route: 041
     Dates: start: 20250909, end: 20250909
  15. DEXAMETHASONE SODIUM PHOSPHATE [Suspect]
     Active Substance: DEXAMETHASONE SODIUM PHOSPHATE
     Dosage: LOT/BATCH NO: DSMSZ-15477
     Route: 041
     Dates: start: 20251027, end: 20251027
  16. DEXAMETHASONE SODIUM PHOSPHATE [Suspect]
     Active Substance: DEXAMETHASONE SODIUM PHOSPHATE
     Dosage: LOT/BATCH NO: DSMSZ-14907
     Route: 041
     Dates: start: 20250910, end: 20250910
  17. DEXAMETHASONE SODIUM PHOSPHATE [Suspect]
     Active Substance: DEXAMETHASONE SODIUM PHOSPHATE
     Dosage: LOT/BATCH NO: DSMSZ-14911
     Route: 041
     Dates: start: 20250918, end: 20250918
  18. DEXAMETHASONE SODIUM PHOSPHATE [Suspect]
     Active Substance: DEXAMETHASONE SODIUM PHOSPHATE
     Dosage: LOT/BATCH NO: DSMSZ-14926
     Route: 041
     Dates: start: 20251007, end: 20251007
  19. DEXAMETHASONE SODIUM PHOSPHATE [Suspect]
     Active Substance: DEXAMETHASONE SODIUM PHOSPHATE
     Dosage: LOT/BATCH NO: DSMSZ-14935
     Route: 041
     Dates: start: 20251014, end: 20251014
  20. DEXAMETHASONE SODIUM PHOSPHATE [Suspect]
     Active Substance: DEXAMETHASONE SODIUM PHOSPHATE
     Dosage: LOT/BATCH NO: DSMSZ-15477
     Route: 041
     Dates: start: 20251022, end: 20251022
  21. VALSARTAN [Concomitant]
     Active Substance: VALSARTAN
     Indication: Hypertension
  22. CALCIUM CARBONATE [Concomitant]
     Active Substance: CALCIUM CARBONATE
     Indication: Bone demineralisation
  23. ACYCLOVIR [Concomitant]
     Active Substance: ACYCLOVIR
     Indication: Antiviral prophylaxis
     Dates: start: 20250916
  24. LEUCOGEN [Concomitant]
     Active Substance: LEUCOGEN
     Indication: Platelet count decreased
     Dates: start: 20250917
  25. VALACYCLOVIR HYDROCHLORIDE [Concomitant]
     Active Substance: VALACYCLOVIR HYDROCHLORIDE
     Indication: Product used for unknown indication
  26. AMINO POLYPEPTIDE [Concomitant]
     Indication: Platelet count decreased
     Dates: start: 20250917, end: 20251013
  27. ROMIPLOSTIM [Concomitant]
     Active Substance: ROMIPLOSTIM
     Indication: Platelet count decreased
     Dosage: ONCE, IH
  28. CALCIUM GLUCONATE [Concomitant]
     Active Substance: CALCIUM GLUCONATE
     Indication: Allergy prophylaxis
     Dosage: ONCE
  29. INDOMETHACIN [Concomitant]
     Active Substance: INDOMETHACIN
     Indication: Antipyresis
     Dosage: 1 SUPPOSITORY, ONCE, RECTAL ADMINISTRATION
     Route: 054

REACTIONS (1)
  - Febrile infection [Recovered/Resolved]

NARRATIVE: CASE EVENT DATE: 20250924
